FAERS Safety Report 6018523-0 (Version None)
Quarter: 2008Q4

REPORT INFORMATION
  Report Type: 
  Country: None (occurrence: None)
  Receive Date: 20081223
  Receipt Date: 20081211
  Transmission Date: 20090506
  Serious: Yes (Other)
  Sender: FDA-Public Use
  Company Number: US-PFIZER INC-2007038837

PATIENT
  Sex: Female
  Weight: 104.32 kg

DRUGS (6)
  1. LIPITOR [Suspect]
     Indication: BLOOD CHOLESTEROL
     Dosage: UNK
     Dates: start: 20060501, end: 20060501
  2. LIPITOR [Suspect]
     Dosage: UNK
     Dates: start: 20080601, end: 20080601
  3. CRESTOR [Suspect]
     Indication: BLOOD CHOLESTEROL INCREASED
     Dosage: UNK
     Route: 048
     Dates: start: 20080701
  4. KEPPRA [Concomitant]
     Dosage: 500 MG, 3X/DAY
  5. ARTHROTEC [Concomitant]
  6. VASOTEC [Concomitant]
     Dosage: 20 MG, 1X/DAY

REACTIONS (1)
  - CONVULSION [None]
